FAERS Safety Report 7801288-7 (Version None)
Quarter: 2011Q4

REPORT INFORMATION
  Report Type: 
  Country: None (occurrence: None)
  Receive Date: 20111007
  Receipt Date: 20090716
  Transmission Date: 20120403
  Serious: No
  Sender: FDA-Public Use
  Company Number: 2009BI022316

PATIENT
  Sex: Female

DRUGS (1)
  1. TYSABRI [Suspect]
     Indication: MULTIPLE SCLEROSIS
     Route: 042
     Dates: start: 20080605, end: 20110805

REACTIONS (8)
  - CONTUSION [None]
  - HEADACHE [None]
  - CHILLS [None]
  - FATIGUE [None]
  - PYREXIA [None]
  - BLOOD PRESSURE DECREASED [None]
  - COAGULOPATHY [None]
  - MULTIPLE SCLEROSIS RELAPSE [None]
